FAERS Safety Report 11381813 (Version 6)
Quarter: 2015Q3

REPORT INFORMATION
  Report Type: Spontaneous
  Country: US (occurrence: US)
  Receive Date: 20150814
  Receipt Date: 20150914
  Transmission Date: 20151125
  Serious: Yes (Other)
  Sender: FDA-Public Use
  Company Number: US-JNJFOC-20150807516

PATIENT
  Sex: Male

DRUGS (12)
  1. ATACAND [Concomitant]
     Active Substance: CANDESARTAN CILEXETIL
     Route: 048
  2. KLONOPIN [Concomitant]
     Active Substance: CLONAZEPAM
     Dosage: QTY: 180 TABLETS, 1 REFILL
     Route: 048
     Dates: start: 20150721
  3. XARELTO [Suspect]
     Active Substance: RIVAROXABAN
     Indication: ATRIAL FIBRILLATION
     Route: 048
     Dates: start: 201507
  4. ROBAXIN [Concomitant]
     Active Substance: METHOCARBAMOL
     Dosage: AS NECESSARY??QTY: 90 TABLETS, 2 REFILLS
     Route: 048
     Dates: start: 20140820
  5. SPIRONOLACTONE. [Concomitant]
     Active Substance: SPIRONOLACTONE
     Route: 048
  6. PROCARDIA XL [Concomitant]
     Active Substance: NIFEDIPINE
     Dosage: AT HS??QTY: 90 TABLET, EXTENDED RELEASE 24 HRS, 3 REFILLS
     Route: 048
     Dates: start: 20140602
  7. CLONIDINE. [Concomitant]
     Active Substance: CLONIDINE
     Dosage: 0.2 MG/24 HOUR. APPLY ONE PATCH EVERY 4 DAYS. QTY: 8 PATCH, TRANSDERMAL WEEKLY (S)
     Route: 062
     Dates: start: 20141223
  8. PANTOPRAZOLE [Concomitant]
     Active Substance: PANTOPRAZOLE SODIUM
     Dosage: QTY: 90 TABLET, 3 REFILLS
     Route: 048
     Dates: start: 20150115
  9. CALAN SR [Concomitant]
     Active Substance: VERAPAMIL HYDROCHLORIDE
     Dosage: QTY: 90 TABLET, EXTENDED RELEASE, 3 REFILLS
     Route: 048
     Dates: start: 20150303
  10. MONTELUKAST [Concomitant]
     Active Substance: MONTELUKAST SODIUM
     Dosage: AT BEDTIME??QTY: 90 TABLETS, 3 REFILLS
     Route: 048
     Dates: start: 20141126
  11. XARELTO [Suspect]
     Active Substance: RIVAROXABAN
     Indication: CEREBROVASCULAR ACCIDENT PROPHYLAXIS
     Route: 048
     Dates: start: 201507
  12. VIAGRA [Concomitant]
     Active Substance: SILDENAFIL CITRATE
     Dosage: ONCE DAILY AS NEEDED 1 HOUR BEFORE INTERCOURSE??QTY: 5 TABLETS, 6 REFILLS
     Route: 048
     Dates: start: 20150323

REACTIONS (1)
  - Haemarthrosis [Not Recovered/Not Resolved]

NARRATIVE: CASE EVENT DATE: 20150810
